FAERS Safety Report 8005006-1 (Version None)
Quarter: 2011Q4

REPORT INFORMATION
  Report Type: 
  Country: None (occurrence: None)
  Receive Date: 20111223
  Receipt Date: 20111220
  Transmission Date: 20120403
  Serious: Yes (Hospitalization)
  Sender: FDA-Public Use
  Company Number: US-PFIZER INC-2011022022

PATIENT
  Sex: Male
  Weight: 54.422 kg

DRUGS (7)
  1. METOPROLOL [Concomitant]
     Indication: HYPERTENSION
     Dosage: UNK
     Dates: start: 20100209
  2. NOVOLOG [Concomitant]
     Indication: DIABETES MELLITUS
     Dosage: UNK
     Dates: start: 20101117
  3. LANTUS [Concomitant]
     Indication: DIABETES MELLITUS
     Dosage: UNK
     Dates: start: 20101116
  4. SIROLIMUS [Suspect]
     Indication: IMMUNOSUPPRESSION
     Dosage: 1 MG, 1X/DAY
     Route: 048
     Dates: start: 20100622
  5. CRESTOR [Concomitant]
     Indication: HYPERCHOLESTEROLAEMIA
     Dosage: UNK
     Dates: end: 20110126
  6. PREDNISONE [Concomitant]
     Indication: IMMUNOSUPPRESSION
     Dosage: UNK
     Dates: start: 20100212
  7. AMLODIPINE [Concomitant]
     Indication: HYPERTENSION
     Dosage: UNK
     Dates: start: 20100209, end: 20110126

REACTIONS (9)
  - MENINGITIS ASEPTIC [None]
  - CULTURE URINE POSITIVE [None]
  - ESCHERICHIA URINARY TRACT INFECTION [None]
  - PYELONEPHRITIS [None]
  - CEREBRAL ARTERIOSCLEROSIS [None]
  - MENTAL STATUS CHANGES [None]
  - CEREBROVASCULAR ACCIDENT [None]
  - METABOLIC ENCEPHALOPATHY [None]
  - RENAL FAILURE ACUTE [None]
